FAERS Safety Report 10075890 (Version 2)
Quarter: 2014Q2

REPORT INFORMATION
  Report Type: Spontaneous
  Country: US (occurrence: US)
  Receive Date: 20140414
  Receipt Date: 20140430
  Transmission Date: 20141212
  Serious: No
  Sender: FDA-Public Use
  Company Number: 2014SP001053

PATIENT
  Age: 20 Year
  Sex: Male
  Weight: 93 kg

DRUGS (7)
  1. LATUDA [Suspect]
     Indication: BIPOLAR DISORDER
     Route: 048
     Dates: start: 20140206, end: 20140305
  2. LATUDA [Suspect]
     Indication: BIPOLAR DISORDER
     Route: 048
     Dates: start: 20140305, end: 20140320
  3. TRILEPTAL [Concomitant]
     Indication: AFFECTIVE DISORDER
  4. SEROQUEL XR [Concomitant]
     Dates: start: 20140324
  5. SEROQUEL XR [Concomitant]
  6. CLONIDINE [Concomitant]
     Indication: ATTENTION DEFICIT/HYPERACTIVITY DISORDER
  7. ADDERALL [Concomitant]
     Indication: ATTENTION DEFICIT/HYPERACTIVITY DISORDER

REACTIONS (1)
  - Hypersensitivity [Recovered/Resolved]
